FAERS Safety Report 16941606 (Version 4)
Quarter: 2020Q1

REPORT INFORMATION
  Report Type: Report from Study
  Country: US (occurrence: US)
  Receive Date: 20191021
  Receipt Date: 20200102
  Transmission Date: 20200409
  Serious: Yes (Other)
  Sender: FDA-Public Use
  Company Number: US-PFIZER INC-2019312321

PATIENT
  Age: 59 Year
  Sex: Female

DRUGS (1)
  1. IBRANCE [Suspect]
     Active Substance: PALBOCICLIB
     Indication: BREAST CANCER FEMALE
     Dosage: 75 MG, CYCLIC (DAILY 21 DAYS ON, 7 DAYS OFF/QD (ONCE A DAY) 21 DAYS ON, 7 DAYS OFF)
     Route: 048
     Dates: start: 20190610

REACTIONS (12)
  - Back pain [Unknown]
  - Neuropathy peripheral [Recovering/Resolving]
  - Bone pain [Recovering/Resolving]
  - Diarrhoea [Recovering/Resolving]
  - Insomnia [Recovering/Resolving]
  - Blood potassium decreased [Recovered/Resolved]
  - Hypocalcaemia [Recovered/Resolved]
  - Anxiety [Not Recovered/Not Resolved]
  - Headache [Recovered/Resolved]
  - Gastrointestinal motility disorder [Unknown]
  - Memory impairment [Unknown]
  - Arthralgia [Recovering/Resolving]

NARRATIVE: CASE EVENT DATE: 2019
